FAERS Safety Report 5297298-7 (Version None)
Quarter: 2007Q2

REPORT INFORMATION
  Report Type: 
  Country: None (occurrence: None)
  Receive Date: 20070410
  Receipt Date: 20070410
  Transmission Date: 20071010
  Serious: Yes (Hospitalization)
  Sender: FDA-Public Use
  Company Number: None

PATIENT
  Age: 53 Year
  Sex: Female
  Weight: 78 kg

DRUGS (26)
  1. JANUVIA [Suspect]
     Indication: DIABETES MELLITUS NON-INSULIN-DEPENDENT
     Dosage: 100MG DAILY ORAL
     Route: 048
  2. LANTUS [Concomitant]
  3. NOVOLOG [Concomitant]
  4. ACTOPLUS MET [Concomitant]
  5. AMARYL [Concomitant]
  6. LASIX [Concomitant]
  7. ATENOLOL [Concomitant]
  8. MICARDIS [Concomitant]
  9. DILTIAZEM [Concomitant]
  10. ZETIA [Concomitant]
  11. LIPITOR [Concomitant]
  12. NIASPAN [Concomitant]
  13. GABAPENTIN [Concomitant]
  14. PREMARIN [Concomitant]
  15. OMEPRAZOLE [Concomitant]
  16. POTASSIUM CHLORIDE [Concomitant]
  17. XANAX [Concomitant]
  18. ZANAFLEX [Concomitant]
  19. LEXAPRO [Concomitant]
  20. REGLAN [Concomitant]
  21. SINGULAIR [Concomitant]
  22. ADVAIR DISKUS 100/50 [Concomitant]
  23. IMODIUM [Concomitant]
  24. IBUPROFEN [Concomitant]
  25. LORTAB [Concomitant]
  26. COMBIVENT [Concomitant]

REACTIONS (3)
  - BLOOD CORTISOL DECREASED [None]
  - DIZZINESS [None]
  - HYPOTENSION [None]
